FAERS Safety Report 7984019-X (Version None)
Quarter: 2011Q4

REPORT INFORMATION
  Report Type: 
  Country: None (occurrence: None)
  Receive Date: 20111216
  Receipt Date: 20111206
  Transmission Date: 20120403
  Serious: Yes (Hospitalization, Other)
  Sender: FDA-Public Use
  Company Number: FR-PFIZER INC-2011304393

PATIENT
  Age: 15 Year
  Sex: Male

DRUGS (5)
  1. METHOCARBAMOL [Suspect]
     Dosage: UNK
     Route: 048
     Dates: start: 20110905, end: 20110905
  2. IBUPROFEN [Suspect]
     Dosage: UNK
     Route: 048
     Dates: start: 20110905, end: 20110905
  3. NAPROXEN [Suspect]
     Dosage: UNK
     Route: 048
     Dates: start: 20110905, end: 20110905
  4. CIPROFLOXACIN HCL [Suspect]
     Dosage: UNK
     Route: 048
     Dates: start: 20110905, end: 20110905
  5. ATARAX [Suspect]
     Dosage: UNK
     Route: 048
     Dates: start: 20110905, end: 20110905

REACTIONS (3)
  - SOMNOLENCE [None]
  - SUICIDE ATTEMPT [None]
  - TOXICITY TO VARIOUS AGENTS [None]
